FAERS Safety Report 20063433 (Version 2)
Quarter: 2022Q1

REPORT INFORMATION
  Report Type: Spontaneous
  Country: US (occurrence: US)
  Receive Date: 20211112
  Receipt Date: 20220104
  Transmission Date: 20220423
  Serious: No
  Sender: FDA-Public Use
  Company Number: US-GLENMARK PHARMACEUTICALS-2021GMK068503

PATIENT

DRUGS (3)
  1. FLUOCINOLONE ACETONIDE [Suspect]
     Active Substance: FLUOCINOLONE ACETONIDE
     Indication: Seborrhoeic dermatitis
     Dosage: UNK
     Route: 061
     Dates: start: 20210924, end: 2021
  2. FLUOCINOLONE ACETONIDE [Suspect]
     Active Substance: FLUOCINOLONE ACETONIDE
     Indication: Psoriasis
     Dosage: UNK (RE-TRY TO USE AFTER FEW DAYS)
     Route: 061
     Dates: start: 2021, end: 2021
  3. VITAMINS NOS [Concomitant]
     Active Substance: VITAMINS
     Indication: Immune system disorder
     Dosage: UNK UNK, OD
     Route: 048

REACTIONS (1)
  - Application site pruritus [Recovered/Resolved]

NARRATIVE: CASE EVENT DATE: 20210924
